FAERS Safety Report 9324842 (Version 2)
Quarter: 2013Q3

REPORT INFORMATION
  Report Type: Report from Study
  Country: JP (occurrence: JP)
  Receive Date: 20130603
  Receipt Date: 20130702
  Transmission Date: 20140515
  Serious: Yes (Life-Threatening)
  Sender: FDA-Public Use
  Company Number: JP-ABBOTT-13P-087-1059680-00

PATIENT
  Age: 61 Year
  Sex: Male

DRUGS (21)
  1. HUMIRA [Suspect]
     Indication: RHEUMATOID ARTHRITIS
     Route: 058
     Dates: start: 20121101, end: 20130221
  2. METHOTREXATE [Concomitant]
     Indication: RHEUMATOID ARTHRITIS
     Dates: start: 20121101, end: 20121114
  3. METHOTREXATE [Concomitant]
     Dates: start: 20121115, end: 20121128
  4. METHOTREXATE [Concomitant]
     Dates: start: 20121129, end: 20121212
  5. METHOTREXATE [Concomitant]
     Dates: start: 20121213, end: 20130123
  6. METHOTREXATE [Concomitant]
     Dates: start: 20130124, end: 20130302
  7. FOLIC ACID [Concomitant]
     Indication: PROPHYLAXIS
     Route: 048
     Dates: start: 20121101, end: 20121114
  8. FOLIC ACID [Concomitant]
     Indication: ADVERSE EVENT
     Dates: start: 20121115, end: 20130302
  9. ISONIAZID [Concomitant]
     Indication: ANTIBIOTIC PROPHYLAXIS
     Route: 048
     Dates: start: 20121018, end: 20130304
  10. DICLOFENAC SODIUM [Concomitant]
     Indication: RHEUMATOID ARTHRITIS
     Route: 048
     Dates: start: 20121018, end: 20121024
  11. DICLOFENAC SODIUM [Concomitant]
     Indication: PYREXIA
  12. DICLOFENAC SODIUM [Concomitant]
     Indication: ANALGESIC THERAPY
  13. DICLOFENAC SODIUM [Concomitant]
     Indication: PROPHYLAXIS
  14. ESOMEPRAZOLE MAGNESIUM [Concomitant]
     Indication: PROPHYLAXIS
     Route: 048
     Dates: start: 20121018, end: 20130304
  15. CELECOXIB [Concomitant]
     Indication: RHEUMATOID ARTHRITIS
     Route: 048
     Dates: start: 20121025, end: 20121226
  16. CELECOXIB [Concomitant]
     Indication: PYREXIA
  17. CELECOXIB [Concomitant]
     Indication: ANALGESIC THERAPY
  18. CELECOXIB [Concomitant]
     Indication: PROPHYLAXIS
  19. AMBROXOL HYDROCHLORIDE [Concomitant]
     Indication: CHRONIC OBSTRUCTIVE PULMONARY DISEASE
     Route: 048
     Dates: start: 20121025, end: 20130304
  20. AMBROXOL HYDROCHLORIDE [Concomitant]
     Indication: ADVERSE EVENT
  21. AMBROXOL HYDROCHLORIDE [Concomitant]
     Indication: PROPHYLAXIS

REACTIONS (2)
  - Cerebral infarction [Recovered/Resolved with Sequelae]
  - Arteriosclerosis [Unknown]
